FAERS Safety Report 11829173 (Version 1)
Quarter: 2015Q4

REPORT INFORMATION
  Report Type: Spontaneous
  Country: TR (occurrence: TR)
  Receive Date: 20151211
  Receipt Date: 20151211
  Transmission Date: 20160305
  Serious: Yes (Other)
  Sender: FDA-Public Use
  Company Number: TR-PFIZER INC-2015436024

PATIENT
  Age: 26 Year
  Sex: Female
  Weight: 66 kg

DRUGS (4)
  1. KLACID [Suspect]
     Active Substance: CLARITHROMYCIN
     Dosage: 500 MG, UNK
  2. ORNISID FORT [Suspect]
     Active Substance: ORNIDAZOLE
     Dosage: 500 MG, UNK
  3. CLEOCIN [Suspect]
     Active Substance: CLINDAMYCIN PHOSPHATE
     Dosage: UNK
  4. MIXOVUL [Suspect]
     Active Substance: LIDOCAINE\METRONIDAZOLE\MICONAZOLE NITRATE
     Dosage: UNK

REACTIONS (5)
  - Nausea [Not Recovered/Not Resolved]
  - Dizziness [Not Recovered/Not Resolved]
  - Tongue discolouration [Not Recovered/Not Resolved]
  - Asthenia [Not Recovered/Not Resolved]
  - Dysgeusia [Not Recovered/Not Resolved]

NARRATIVE: CASE EVENT DATE: 201511
